FAERS Safety Report 9315535 (Version 1)
Quarter: 2013Q2

REPORT INFORMATION
  Report Type: Spontaneous
  Country: US (occurrence: US)
  Receive Date: 20130529
  Receipt Date: 20130529
  Transmission Date: 20140414
  Serious: No
  Sender: FDA-Public Use
  Company Number: US-009507513-1305USA011510

PATIENT
  Age: 61 Year
  Sex: Female
  Weight: 83.9 kg

DRUGS (2)
  1. CLARITIN-D 12 HOUR [Suspect]
     Indication: HYPERSENSITIVITY
     Dosage: UNK, UNKNOWN
     Route: 048
     Dates: start: 20130504
  2. CLARITIN-D 12 HOUR [Suspect]
     Dosage: UNK, UNKNOWN
     Route: 048
     Dates: start: 20130504

REACTIONS (1)
  - Inappropriate schedule of drug administration [Unknown]
